FAERS Safety Report 12202233 (Version 1)
Quarter: 2016Q1

REPORT INFORMATION
  Report Type: Spontaneous
  Country: US (occurrence: US)
  Receive Date: 20160322
  Receipt Date: 20160322
  Transmission Date: 20160526
  Serious: Yes (Other)
  Sender: FDA-Public Use
  Company Number: US-SA-2016SA053042

PATIENT
  Age: 64 Year
  Sex: Female

DRUGS (2)
  1. SOLOSTAR [Concomitant]
     Active Substance: DEVICE
  2. LANTUS SOLOSTAR [Suspect]
     Active Substance: INSULIN GLARGINE
     Indication: TYPE 2 DIABETES MELLITUS
     Dosage: DOSE:50 UNIT(S)
     Route: 065

REACTIONS (11)
  - Pain in extremity [Unknown]
  - Hypertension [Unknown]
  - Weight increased [Unknown]
  - Cardiac failure congestive [Unknown]
  - Drug hypersensitivity [Unknown]
  - Blood glucose abnormal [Unknown]
  - Burning sensation [Unknown]
  - Swelling [Unknown]
  - Swelling face [Unknown]
  - Dysphagia [Unknown]
  - Movement disorder [Unknown]
